FAERS Safety Report 8001338-1 (Version None)
Quarter: 2011Q4

REPORT INFORMATION
  Report Type: 
  Country: None (occurrence: None)
  Receive Date: 20111222
  Receipt Date: 20111214
  Transmission Date: 20120403
  Serious: Yes (Hospitalization)
  Sender: FDA-Public Use
  Company Number: US-BAYER-2011-056389

PATIENT
  Age: 20 Year
  Sex: Female
  Weight: 48.98 kg

DRUGS (2)
  1. BACTRIM [Concomitant]
  2. YAZ [Suspect]
     Dosage: UNK
     Route: 048
     Dates: start: 20090701, end: 20100101

REACTIONS (2)
  - PAIN [None]
  - DEEP VEIN THROMBOSIS [None]
